FAERS Safety Report 6757783-5 (Version None)
Quarter: 2010Q2

REPORT INFORMATION
  Report Type: 
  Country: None (occurrence: None)
  Receive Date: 20100524
  Receipt Date: 20100125
  Transmission Date: 20101027
  Serious: No
  Sender: FDA-Public Use
  Company Number: 005565

PATIENT
  Sex: Male

DRUGS (1)
  1. CIMZIA [Suspect]
     Indication: CROHN'S DISEASE
     Dosage: 400 MG EVERY 28 DAYS SUBCUTANEOUS
     Route: 058

REACTIONS (3)
  - ANIMAL SCRATCH [None]
  - ERYTHEMA [None]
  - WOUND INFECTION [None]
